FAERS Safety Report 7552866-4 (Version None)
Quarter: 2011Q2

REPORT INFORMATION
  Report Type: 
  Country: None (occurrence: None)
  Receive Date: 20110616
  Receipt Date: 20110506
  Transmission Date: 20111010
  Serious: Yes (Other)
  Sender: FDA-Public Use
  Company Number: PHHY2011BR38856

PATIENT
  Sex: Male

DRUGS (4)
  1. FUROSEMIDE [Concomitant]
     Dosage: UNK
     Route: 048
  2. RASILEZ [Suspect]
     Dosage: 300 MG, UNK
  3. DIGOXIN [Concomitant]
     Dosage: UNK
  4. ENALAPRIL MALEATE [Suspect]
     Dosage: UNK
     Route: 048

REACTIONS (1)
  - BRONCHOSPASM [None]
